FAERS Safety Report 13890960 (Version 2)
Quarter: 2017Q3

REPORT INFORMATION
  Report Type: Spontaneous
  Country: FR (occurrence: FR)
  Receive Date: 20170822
  Receipt Date: 20170904
  Transmission Date: 20171127
  Serious: Yes (Hospitalization)
  Sender: FDA-Public Use
  Company Number: FR-ROCHE-1979229

PATIENT
  Age: 72 Year
  Sex: Male

DRUGS (11)
  1. VALIUM [Suspect]
     Active Substance: DIAZEPAM
     Indication: ANXIETY
     Route: 048
     Dates: start: 20170622
  2. AUGMENTIN [Suspect]
     Active Substance: AMOXICILLIN\CLAVULANATE POTASSIUM
     Indication: PNEUMONIA ASPIRATION
     Dosage: (AMOXICILLIN/CLAVULANIC ACID RATIO: 8/1)
     Route: 048
     Dates: start: 20170622, end: 20170623
  3. TRAZODONE [Suspect]
     Active Substance: TRAZODONE HYDROCHLORIDE
     Indication: ABNORMAL BEHAVIOUR
     Route: 048
     Dates: start: 20170606, end: 20170623
  4. TARDYFERON (FRANCE) [Concomitant]
     Active Substance: FERROUS SULFATE\GASTRIC MUCIN
     Route: 048
     Dates: start: 20170622, end: 20170701
  5. SPECIAFOLDINE [Concomitant]
     Active Substance: FOLIC ACID
     Route: 048
     Dates: start: 20170602
  6. LARGACTIL [Suspect]
     Active Substance: CHLORPROMAZINE
     Indication: HICCUPS
     Route: 048
     Dates: start: 20170622, end: 20170623
  7. PREVISCAN (FRANCE) [Concomitant]
     Active Substance: FLUINDIONE
     Dosage: LONG-TERM TREATMENT
     Route: 048
     Dates: end: 20170620
  8. LOXAPAC [Concomitant]
     Active Substance: LOXAPINE SUCCINATE
     Dosage: LONG TERM TREATMENT
     Route: 030
  9. CEFTRIAXONE. [Concomitant]
     Active Substance: CEFTRIAXONE
  10. HALDOL [Concomitant]
     Active Substance: HALOPERIDOL
     Route: 048
     Dates: start: 20170602, end: 20170701
  11. KEPPRA [Concomitant]
     Active Substance: LEVETIRACETAM
     Route: 048
     Dates: start: 20170602, end: 20170701

REACTIONS (1)
  - Jaundice cholestatic [Recovered/Resolved]

NARRATIVE: CASE EVENT DATE: 20170623
